FAERS Safety Report 6183318-4 (Version None)
Quarter: 2009Q2

REPORT INFORMATION
  Report Type: 
  Country: None (occurrence: None)
  Receive Date: 20090507
  Receipt Date: 20090428
  Transmission Date: 20091009
  Serious: Yes (Hospitalization, Other)
  Sender: FDA-Public Use
  Company Number: FR-ABBOTT-09P-056-0566701-00

PATIENT
  Sex: Male
  Weight: 75 kg

DRUGS (2)
  1. MONONAXY [Suspect]
     Indication: CHRONIC OBSTRUCTIVE PULMONARY DISEASE
     Dates: start: 20090109, end: 20090111
  2. MONONAXY [Suspect]
     Indication: PHARYNGITIS

REACTIONS (6)
  - ANGIOEDEMA [None]
  - FACE OEDEMA [None]
  - GENERALISED ERYTHEMA [None]
  - HYPERSENSITIVITY [None]
  - PRURITUS [None]
  - RASH [None]
